FAERS Safety Report 24080988 (Version 1)
Quarter: 2024Q3

REPORT INFORMATION
  Report Type: Spontaneous
  Country: US (occurrence: US)
  Receive Date: 20240711
  Receipt Date: 20240711
  Transmission Date: 20241016
  Serious: No
  Sender: MYLAN
  Company Number: US-MYLANLABS-2024M1062787

PATIENT
  Sex: Male
  Weight: 74.9 kg

DRUGS (2)
  1. NEURONTIN [Suspect]
     Active Substance: GABAPENTIN
     Indication: Neuropathy peripheral
     Dosage: 100 MILLIGRAM, BID (TWICE DAILY) AS NEEDED
     Route: 048
     Dates: start: 20230104, end: 20240509
  2. NEURONTIN [Suspect]
     Active Substance: GABAPENTIN
     Indication: Neck pain

REACTIONS (2)
  - Pruritus [Unknown]
  - Off label use [Unknown]
